FAERS Safety Report 13643449 (Version 3)
Quarter: 2018Q1

REPORT INFORMATION
  Report Type: Spontaneous
  Country: US (occurrence: US)
  Receive Date: 20170612
  Receipt Date: 20180108
  Transmission Date: 20180508
  Serious: No
  Sender: FDA-Public Use
  Company Number: US-BAYER-2017-111280

PATIENT

DRUGS (2)
  1. GADAVIST [Suspect]
     Active Substance: GADOBUTROL
     Dosage: UNK
  2. GADAVIST [Suspect]
     Active Substance: GADOBUTROL
     Dosage: 7.5 ML, ONCE

REACTIONS (2)
  - Incorrect dose administered by device [None]
  - Injection site extravasation [None]
